FAERS Safety Report 11120105 (Version 5)
Quarter: 2015Q4

REPORT INFORMATION
  Report Type: Spontaneous
  Country: US (occurrence: US)
  Receive Date: 20150518
  Receipt Date: 20151012
  Transmission Date: 20160304
  Serious: Yes (Hospitalization)
  Sender: FDA-Public Use
  Company Number: US-ELI_LILLY_AND_COMPANY-US201505002958

PATIENT
  Age: 60 Year
  Sex: Male
  Weight: 88 kg

DRUGS (2)
  1. CIALIS [Suspect]
     Active Substance: TADALAFIL
     Indication: ERECTILE DYSFUNCTION
     Dosage: 20 MG, EVERY DAY PRN PRIOR TO SEXUAL ACTIVITY
     Route: 048
     Dates: start: 201407
  2. NAPROXEN. [Concomitant]
     Active Substance: NAPROXEN
     Dosage: UNK, BID
     Route: 065
     Dates: start: 20090715, end: 20141020

REACTIONS (1)
  - Subarachnoid haemorrhage [Recovered/Resolved]

NARRATIVE: CASE EVENT DATE: 20141111
